FAERS Safety Report 6436912-7 (Version None)
Quarter: 2009Q4

REPORT INFORMATION
  Report Type: 
  Country: None (occurrence: None)
  Receive Date: 20091109
  Receipt Date: 20091026
  Transmission Date: 20100525
  Serious: Yes (Other)
  Sender: FDA-Public Use
  Company Number: 422182

PATIENT
  Age: 55 Year
  Sex: Male
  Weight: 90 kg

DRUGS (29)
  1. DEFEROXAMINE MESYLATE [Suspect]
     Dosage: 350 MG, 1 WEEK, INTRAVENOUS ; 350 MG (2 WEEK) INTRAVENOUS; 350 MG (3 WEEK) INTRAVENOUS
     Route: 042
  2. EPREX [Suspect]
     Indication: NEPHROGENIC ANAEMIA
     Dosage: SEE IMAGE
     Route: 058
     Dates: start: 20010514, end: 20021008
  3. EPREX [Suspect]
     Indication: NEPHROGENIC ANAEMIA
     Dosage: SEE IMAGE
     Route: 058
     Dates: start: 20010514, end: 20021008
  4. EPREX [Suspect]
     Indication: NEPHROGENIC ANAEMIA
     Dosage: SEE IMAGE
     Route: 058
     Dates: start: 20010514, end: 20021008
  5. EPREX [Suspect]
     Indication: NEPHROGENIC ANAEMIA
     Dosage: SEE IMAGE
     Route: 058
     Dates: start: 20010514, end: 20021008
  6. EPREX [Suspect]
     Indication: NEPHROGENIC ANAEMIA
     Dosage: SEE IMAGE
     Route: 058
     Dates: start: 20010514, end: 20021008
  7. EPREX [Suspect]
     Indication: NEPHROGENIC ANAEMIA
     Dosage: SEE IMAGE
     Route: 058
     Dates: start: 20010514, end: 20021008
  8. EPREX [Suspect]
     Indication: NEPHROGENIC ANAEMIA
     Dosage: SEE IMAGE
     Route: 058
     Dates: start: 20010514, end: 20021008
  9. EPREX [Suspect]
     Indication: NEPHROGENIC ANAEMIA
     Dosage: SEE IMAGE
     Route: 058
     Dates: start: 20010514, end: 20021008
  10. EPREX [Suspect]
     Indication: NEPHROGENIC ANAEMIA
     Dosage: SEE IMAGE
     Route: 058
     Dates: start: 20010514, end: 20021008
  11. (ALFACALCIDOL) [Concomitant]
  12. AMLODIPINE [Concomitant]
  13. ARANESP [Concomitant]
  14. ASPIRIN [Concomitant]
  15. ATENOLOL [Concomitant]
  16. (ATORVASTATIN) [Concomitant]
  17. (BENDROFLUAZIDE) [Concomitant]
  18. CALCIUM ACETATE [Concomitant]
  19. CALCIUM CARBONATE [Concomitant]
  20. (DOXAZOSIN) [Concomitant]
  21. (FERROUS SULPHATE /00023503/) [Concomitant]
  22. FOLIC ACID [Concomitant]
  23. (GLICLAZIDE) [Concomitant]
  24. IRON SUCROSE [Concomitant]
  25. (KETOVITE /00660901/) [Concomitant]
  26. LANSOPRAZOLE [Concomitant]
  27. (NEORECORMON) [Concomitant]
  28. (PARACETAMOL) [Concomitant]
  29. (QUININE SULPHATE) [Concomitant]

REACTIONS (14)
  - ANTI-ERYTHROPOIETIN ANTIBODY POSITIVE [None]
  - APLASIA PURE RED CELL [None]
  - BLOOD GLUCOSE INCREASED [None]
  - DIABETES MELLITUS [None]
  - ESCHERICHIA BACTERAEMIA [None]
  - FIBULA FRACTURE [None]
  - HAEMODIALYSIS [None]
  - IRON OVERLOAD [None]
  - KIDNEY TRANSPLANT REJECTION [None]
  - LEUKOPENIA [None]
  - PNEUMOCYSTIS JIROVECI PNEUMONIA [None]
  - RENAL FAILURE CHRONIC [None]
  - RENAL TRANSPLANT [None]
  - THERAPEUTIC RESPONSE DECREASED [None]
